FAERS Safety Report 10166460 (Version 1)
Quarter: 2014Q2

REPORT INFORMATION
  Report Type: Spontaneous
  Country: US (occurrence: None)
  Receive Date: 20140509
  Receipt Date: 20140509
  Transmission Date: 20141212
  Serious: Yes (Life-Threatening)
  Sender: FDA-Public Use
  Company Number: None

PATIENT
  Age: 69 Year
  Sex: Male
  Weight: 63.5 kg

DRUGS (10)
  1. ISOSORBIDE MONONITRATE [Suspect]
     Indication: CORONARY ARTERY DISEASE
     Dosage: 60MG 1 PO QAM  P.O.
     Route: 048
  2. ISOSORBIDE MONONITRATE [Suspect]
     Indication: ANGINA PECTORIS
     Dosage: 60MG 1 PO QAM  P.O.
     Route: 048
  3. AMLODIPINE [Concomitant]
  4. BABY ASA [Concomitant]
  5. NITROSTAT SL [Concomitant]
  6. FLOMAX [Concomitant]
  7. PRANDIN [Concomitant]
  8. FISH OIL [Concomitant]
  9. VIT D3 [Concomitant]
  10. RED YEAST EXTRACT [Concomitant]

REACTIONS (3)
  - Angina pectoris [None]
  - Product quality issue [None]
  - Product substitution issue [None]
